FAERS Safety Report 5849877-3 (Version None)
Quarter: 2008Q3

REPORT INFORMATION
  Report Type: 
  Country: None (occurrence: None)
  Receive Date: 20080818
  Receipt Date: 20080818
  Transmission Date: 20090109
  Serious: Yes (Hospitalization)
  Sender: FDA-Public Use
  Company Number: None

PATIENT
  Age: 67 Year
  Sex: Male
  Weight: 106.1417 kg

DRUGS (2)
  1. VERSED [Suspect]
  2. DEMEROL [Suspect]

REACTIONS (1)
  - HEART RATE DECREASED [None]
